FAERS Safety Report 20065088 (Version 2)
Quarter: 2021Q4

REPORT INFORMATION
  Report Type: Report from Study
  Country: CL (occurrence: CL)
  Receive Date: 20211113
  Receipt Date: 20211204
  Transmission Date: 20220303
  Serious: Yes (Other)
  Sender: FDA-Public Use
  Company Number: CL-NOVARTISPH-NVSC2021CL256959

PATIENT
  Sex: Female

DRUGS (1)
  1. COSENTYX [Suspect]
     Active Substance: SECUKINUMAB
     Indication: Psoriatic arthropathy
     Dosage: 300 MG, QMO
     Route: 058
     Dates: start: 20211025

REACTIONS (6)
  - Accident [Unknown]
  - Hand fracture [Unknown]
  - Arthralgia [Unknown]
  - Pain in extremity [Unknown]
  - Hypertension [Unknown]
  - Bone pain [Unknown]
